FAERS Safety Report 6863013-6 (Version None)
Quarter: 2010Q3

REPORT INFORMATION
  Report Type: 
  Country: None (occurrence: None)
  Receive Date: 20100721
  Receipt Date: 20100719
  Transmission Date: 20110219
  Serious: Yes (Hospitalization)
  Sender: FDA-Public Use
  Company Number: TW-SANOFI-AVENTIS-2010SA042069

PATIENT
  Age: 69 Year
  Sex: Female

DRUGS (1)
  1. AMARYL [Suspect]
     Route: 048
     Dates: start: 20100601, end: 20100716

REACTIONS (3)
  - GINGIVAL BLEEDING [None]
  - THROMBOCYTOPENIA [None]
  - WHITE BLOOD CELL DISORDER [None]
